FAERS Safety Report 7338437-3 (Version None)
Quarter: 2011Q1

REPORT INFORMATION
  Report Type: 
  Country: None (occurrence: None)
  Receive Date: 20110210
  Receipt Date: 20101222
  Transmission Date: 20110831
  Serious: No
  Sender: FDA-Public Use
  Company Number: 1000017652

PATIENT
  Age: 62 Year
  Sex: Female

DRUGS (3)
  1. SAVELLA [Suspect]
     Dosage: 12.5 MG (12.5 MG, 1 IN 1 D), ORAL, 25 MG (12.5 MG, 2 IN 1 D), ORAL, 50 MG (25 MG, 2 IN 1 D), ORAL
     Route: 048
     Dates: start: 20100701, end: 20100801
  2. SAVELLA [Suspect]
     Dosage: 12.5 MG (12.5 MG, 1 IN 1 D), ORAL, 25 MG (12.5 MG, 2 IN 1 D), ORAL, 50 MG (25 MG, 2 IN 1 D), ORAL
     Route: 048
     Dates: start: 20100701, end: 20100701
  3. SAVELLA [Suspect]
     Dosage: 12.5 MG (12.5 MG, 1 IN 1 D), ORAL, 25 MG (12.5 MG, 2 IN 1 D), ORAL, 50 MG (25 MG, 2 IN 1 D), ORAL
     Route: 048
     Dates: start: 20100701, end: 20100701

REACTIONS (1)
  - HEPATIC ENZYME INCREASED [None]
